FAERS Safety Report 5506225-6 (Version None)
Quarter: 2007Q4

REPORT INFORMATION
  Report Type: 
  Country: None (occurrence: None)
  Receive Date: 20071101
  Receipt Date: 20071017
  Transmission Date: 20080405
  Serious: Yes (Other)
  Sender: FDA-Public Use
  Company Number: 2007S1010204

PATIENT
  Age: 82 Year
  Sex: Male

DRUGS (12)
  1. BICOR /00802602/ (BISOPROLOL FUMARATE) [Suspect]
     Indication: ATRIAL FLUTTER
     Dosage: ;DAILY;ORAL 5 MG;DAILY;ORAL; 10 MG;DAILY;ORAL; 5MG;EVERY OTHER DAY;ORAL
     Route: 048
     Dates: start: 20060101, end: 20070401
  2. BICOR /00802602/ (BISOPROLOL FUMARATE) [Suspect]
     Indication: ATRIAL FLUTTER
     Dosage: ;DAILY;ORAL 5 MG;DAILY;ORAL; 10 MG;DAILY;ORAL; 5MG;EVERY OTHER DAY;ORAL
     Route: 048
     Dates: start: 20070401, end: 20070618
  3. BICOR /00802602/ (BISOPROLOL FUMARATE) [Suspect]
     Indication: ATRIAL FLUTTER
     Dosage: ;DAILY;ORAL 5 MG;DAILY;ORAL; 10 MG;DAILY;ORAL; 5MG;EVERY OTHER DAY;ORAL
     Route: 048
     Dates: start: 20070619, end: 20070716
  4. BICOR /00802602/ (BISOPROLOL FUMARATE) [Suspect]
     Indication: ATRIAL FLUTTER
     Dosage: ;DAILY;ORAL 5 MG;DAILY;ORAL; 10 MG;DAILY;ORAL; 5MG;EVERY OTHER DAY;ORAL
     Route: 048
     Dates: start: 20070717, end: 20070820
  5. BICOR /00802602/ (BISOPROLOL FUMARATE) [Suspect]
     Indication: ATRIAL FLUTTER
     Dosage: ;DAILY;ORAL 5 MG;DAILY;ORAL; 10 MG;DAILY;ORAL; 5MG;EVERY OTHER DAY;ORAL
     Route: 048
     Dates: start: 20070821, end: 20070914
  6. BICOR /00802602/ (BISOPROLOL FUMARATE) [Suspect]
     Indication: ATRIAL FLUTTER
     Dosage: ;DAILY;ORAL 5 MG;DAILY;ORAL; 10 MG;DAILY;ORAL; 5MG;EVERY OTHER DAY;ORAL
     Route: 048
     Dates: start: 20070915, end: 20071030
  7. BICOR /00802602/ (BISOPROLOL FUMARATE) [Suspect]
     Indication: ATRIAL FLUTTER
     Dosage: ;DAILY;ORAL 5 MG;DAILY;ORAL; 10 MG;DAILY;ORAL; 5MG;EVERY OTHER DAY;ORAL
     Route: 048
     Dates: start: 20071031
  8. WARFARIN SODIUM [Concomitant]
  9. ALDACTONE [Concomitant]
  10. TRITACE [Concomitant]
  11. UREMIDE [Concomitant]
  12. ZESTRIL [Concomitant]

REACTIONS (9)
  - AMNESIA [None]
  - DEPRESSION [None]
  - DYSPNOEA EXERTIONAL [None]
  - EXERCISE TOLERANCE DECREASED [None]
  - FATIGUE [None]
  - IRRITABILITY [None]
  - MEMORY IMPAIRMENT [None]
  - MENTAL IMPAIRMENT [None]
  - WEIGHT INCREASED [None]
